FAERS Safety Report 19020522 (Version 4)
Quarter: 2021Q2

REPORT INFORMATION
  Report Type: Spontaneous
  Country: JP (occurrence: JP)
  Receive Date: 20210317
  Receipt Date: 20210503
  Transmission Date: 20210717
  Serious: Yes (Life-Threatening)
  Sender: FDA-Public Use
  Company Number: JP-JT-EVA202100129KERYXP

PATIENT
  Age: 83 Year
  Sex: Male
  Weight: 42.6 kg

DRUGS (3)
  1. ZINC. [Concomitant]
     Active Substance: ZINC
     Indication: HYPOZINCAEMIA
     Dosage: 25 MILLIGRAM (TABLET), QD
     Route: 048
     Dates: start: 20201114
  2. RIONA [Suspect]
     Active Substance: FERRIC CITRATE ANHYDROUS
     Indication: HYPERPHOSPHATAEMIA
     Dosage: 500 MILLIGRAM, Q8H (2 TABLETS 3 TIMES A DAY)
     Route: 048
     Dates: start: 20210223, end: 20210224
  3. TAKELDA [Concomitant]
     Active Substance: ASPIRIN\LANSOPRAZOLE
     Indication: CARDIAC FAILURE
     Dosage: TABLET
     Route: 048
     Dates: start: 20201114

REACTIONS (2)
  - Overdose [Unknown]
  - Anaphylactic shock [Recovered/Resolved]

NARRATIVE: CASE EVENT DATE: 20210224
